FAERS Safety Report 25587255 (Version 1)
Quarter: 2025Q3

REPORT INFORMATION
  Report Type: Spontaneous
  Country: US (occurrence: US)
  Receive Date: 20250721
  Receipt Date: 20250721
  Transmission Date: 20251021
  Serious: No
  Sender: CALLIDITAS THERAPEUTICS AB
  Company Number: US-Calliditas-2025CAL02035

PATIENT
  Age: 36 Year
  Sex: Female

DRUGS (2)
  1. TARPEYO [Suspect]
     Active Substance: BUDESONIDE
     Indication: IgA nephropathy
     Dosage: 16MG (4MG CAPSULES) ONCE DAILY, 1 HOUR PRIOR TO BREAKFAST
     Route: 048
     Dates: start: 20240116, end: 20250707
  2. FILSPARI [Concomitant]
     Active Substance: SPARSENTAN

REACTIONS (2)
  - Dialysis [Unknown]
  - Drug ineffective [Unknown]
